FAERS Safety Report 6838211-8 (Version None)
Quarter: 2010Q3

REPORT INFORMATION
  Report Type: 
  Country: None (occurrence: None)
  Receive Date: 20100713
  Receipt Date: 20070605
  Transmission Date: 20110219
  Serious: No
  Sender: FDA-Public Use
  Company Number: US-PFIZER INC-2007047924

PATIENT
  Sex: Female
  Weight: 81.6 kg

DRUGS (9)
  1. CHANTIX [Suspect]
     Indication: SMOKING CESSATION THERAPY
     Dates: start: 20070417
  2. LIPITOR [Concomitant]
     Indication: BLOOD CHOLESTEROL INCREASED
  3. LORTAB [Concomitant]
  4. ADVAIR DISKUS 100/50 [Concomitant]
  5. PAXIL [Concomitant]
  6. ALL OTHER THERAPEUTIC PRODUCTS [Concomitant]
  7. ATIVAN [Concomitant]
     Indication: PSYCHOMOTOR HYPERACTIVITY
  8. ACETYLSALICYLIC ACID [Concomitant]
     Indication: ISCHAEMIC HEART DISEASE PROPHYLAXIS
  9. ALBUTEROL [Concomitant]

REACTIONS (10)
  - BLOOD CHOLESTEROL INCREASED [None]
  - BRONCHIAL SECRETION RETENTION [None]
  - DRUG INEFFECTIVE [None]
  - DRUG WITHDRAWAL SYNDROME [None]
  - DRY THROAT [None]
  - HYPERHIDROSIS [None]
  - IRRITABILITY [None]
  - MALAISE [None]
  - POLYDIPSIA [None]
  - RETCHING [None]
